FAERS Safety Report 7706956-3 (Version None)
Quarter: 2011Q3

REPORT INFORMATION
  Report Type: 
  Country: None (occurrence: None)
  Receive Date: 20110824
  Receipt Date: 20110819
  Transmission Date: 20111222
  Serious: No
  Sender: FDA-Public Use
  Company Number: US-PFIZER INC-2011192655

PATIENT
  Sex: Female
  Weight: 94 kg

DRUGS (7)
  1. METFORMIN [Concomitant]
     Dosage: 1000 MG, DAILY
  2. BONIVA [Concomitant]
     Indication: MINERAL SUPPLEMENTATION
     Dosage: UNK
  3. AMLODIPINE/VALSARTAN [Concomitant]
     Indication: HYPERTENSION
     Dosage: 5/160
  4. ZYVOX [Suspect]
     Indication: HERNIA REPAIR
     Dosage: 600 MG, 2X/DAY
  5. WELLBUTRIN [Concomitant]
     Dosage: 300 MG, DAILY
  6. PROTONIX [Concomitant]
     Indication: PROPHYLAXIS
     Dosage: UNK
  7. PREDNISONE [Concomitant]
     Dosage: 5 MG, UNK

REACTIONS (1)
  - SUTURE RELATED COMPLICATION [None]
